FAERS Safety Report 15190694 (Version 1)
Quarter: 2018Q3

REPORT INFORMATION
  Report Type: Spontaneous
  Country: US (occurrence: US)
  Receive Date: 20180724
  Receipt Date: 20180724
  Transmission Date: 20181010
  Serious: No
  Sender: FDA-Public Use
  Company Number: US-LNK INTERNATIONAL, INC.-2052661

PATIENT
  Age: 24 Month
  Sex: Male

DRUGS (1)
  1. DIPHENHYDRAMINE HCL 25MG CAPSULES [Suspect]
     Active Substance: DIPHENHYDRAMINE HYDROCHLORIDE

REACTIONS (2)
  - Hallucination [None]
  - Accidental exposure to product by child [None]
